FAERS Safety Report 5570235-3 (Version None)
Quarter: 2007Q4

REPORT INFORMATION
  Report Type: 
  Country: None (occurrence: None)
  Receive Date: 20071219
  Receipt Date: 20071206
  Transmission Date: 20080405
  Serious: Yes (Other)
  Sender: FDA-Public Use
  Company Number: 2007337273

PATIENT
  Sex: Male

DRUGS (1)
  1. LISTERINE WHITENING QUICK DISSOLVING STRIPS (NO ACTIVE INGREDIENT) [Suspect]
     Indication: DENTAL CARE
     Dosage: UNSPECIFIED AMOUNT FOR 2 DAYS, ORAL
     Route: 048

REACTIONS (2)
  - CHEMICAL BURN OF SKIN [None]
  - LIP DISORDER [None]
